FAERS Safety Report 18881911 (Version 1)
Quarter: 2021Q1

REPORT INFORMATION
  Report Type: Spontaneous
  Country: US (occurrence: US)
  Receive Date: 20210212
  Receipt Date: 20210212
  Transmission Date: 20210420
  Serious: No
  Sender: FDA-Public Use
  Company Number: US-JNJFOC-20210140334

PATIENT

DRUGS (1)
  1. VISINE A MULTI?ACTION EYE ALLERGY RELIEF [Suspect]
     Active Substance: NAPHAZOLINE HYDROCHLORIDE\PHENIRAMINE MALEATE
     Indication: EYE IRRITATION
     Dosage: MONTHS OF USE
     Route: 047

REACTIONS (3)
  - Eye pain [Unknown]
  - Product use in unapproved indication [Unknown]
  - Eye pruritus [Unknown]
